FAERS Safety Report 15940703 (Version 1)
Quarter: 2019Q1

REPORT INFORMATION
  Report Type: Spontaneous
  Country: US (occurrence: US)
  Receive Date: 20190208
  Receipt Date: 20190208
  Transmission Date: 20190417
  Serious: No
  Sender: FDA-Public Use
  Company Number: US-PFIZER INC-2017409021

PATIENT
  Age: 12 Year
  Sex: Female
  Weight: 25.76 kg

DRUGS (3)
  1. GENOTROPIN [Suspect]
     Active Substance: SOMATROPIN
     Dosage: 1.8 MG, DAILY (FOR 6 OUT OF 7 DAYS A WEEK)
     Route: 058
  2. GENOTROPIN [Suspect]
     Active Substance: SOMATROPIN
     Indication: GROWTH HORMONE DEFICIENCY
     Dosage: ALTERNATE 1.2MG AND 1.4MG INJECTED 6 DAYS A WEEK/6 X 3 WK
     Route: 058
     Dates: start: 20171027
  3. GENOTROPIN [Suspect]
     Active Substance: SOMATROPIN
     Dosage: 2 MG, UNK [6 DAYS A WEEK]

REACTIONS (2)
  - Product prescribing error [Unknown]
  - Headache [Unknown]
